FAERS Safety Report 4446546-1 (Version None)
Quarter: 2004Q3

REPORT INFORMATION
  Report Type: 
  Country: None (occurrence: None)
  Receive Date: 20040902
  Receipt Date: 20040818
  Transmission Date: 20050211
  Serious: Yes (Other)
  Sender: FDA-Public Use
  Company Number: 201893

PATIENT
  Age: 54 Year
  Sex: Female
  Weight: 61.2 kg

DRUGS (2)
  1. AVONEX [Suspect]
     Indication: MULTIPLE SCLEROSIS
     Dosage: 30 MCG QW IM
     Route: 030
     Dates: start: 19970101
  2. CLIOGAN [Concomitant]

REACTIONS (8)
  - CHOLECYSTITIS [None]
  - CHOLELITHIASIS [None]
  - HAEMANGIOMA OF LIVER [None]
  - HEPATIC NEOPLASM [None]
  - HEPATIC STEATOSIS [None]
  - HEPATOMEGALY [None]
  - RASH [None]
  - SYSTEMIC LUPUS ERYTHEMATOSUS [None]
